FAERS Safety Report 4811820-3 (Version None)
Quarter: 2005Q4

REPORT INFORMATION
  Report Type: 
  Country: None (occurrence: None)
  Receive Date: 20051026
  Receipt Date: 20051018
  Transmission Date: 20060501
  Serious: Yes (Other)
  Sender: FDA-Public Use
  Company Number: 2005144019

PATIENT
  Age: 75 Year
  Sex: Male

DRUGS (1)
  1. CARDURA XL [Suspect]
     Indication: BENIGN PROSTATIC HYPERPLASIA
     Dosage: 4 MG (4 MG QD), ORAL
     Route: 048
     Dates: start: 20000701

REACTIONS (3)
  - DRUG INEFFECTIVE [None]
  - NEOPLASM PROSTATE [None]
  - PAIN [None]
